FAERS Safety Report 25648478 (Version 1)
Quarter: 2025Q3

REPORT INFORMATION
  Report Type: Spontaneous
  Country: JP (occurrence: JP)
  Receive Date: 20250806
  Receipt Date: 20250806
  Transmission Date: 20251020
  Serious: Yes (Hospitalization)
  Sender: CHEPLAPHARM
  Company Number: JP-CHEPLA-2025008653

PATIENT
  Age: 70 Year
  Sex: Male
  Weight: 37.5 kg

DRUGS (20)
  1. CARBOPLATIN [Suspect]
     Active Substance: CARBOPLATIN
     Indication: Non-small cell lung cancer
     Route: 042
     Dates: start: 20250620, end: 20250620
  2. OLANZAPINE [Suspect]
     Active Substance: OLANZAPINE
     Indication: Non-small cell lung cancer
     Dosage: DAILY DOSE: 2.5 MILLIGRAM
     Dates: start: 20250603
  3. OLANZAPINE [Suspect]
     Active Substance: OLANZAPINE
     Indication: Prophylaxis of nausea and vomiting
     Dosage: DAILY DOSE: 2.5 MILLIGRAM
     Dates: start: 20250603
  4. PEMBROLIZUMAB [Suspect]
     Active Substance: PEMBROLIZUMAB
     Indication: Non-small cell lung cancer
     Route: 042
     Dates: start: 20250620, end: 20250620
  5. PEMETREXED [Suspect]
     Active Substance: PEMETREXED
     Indication: Non-small cell lung cancer
     Route: 042
     Dates: start: 20250620, end: 20250620
  6. OXYCONTIN [Concomitant]
     Active Substance: OXYCODONE HYDROCHLORIDE
     Indication: Tumour pain
     Dosage: 5 MG, 2/DAYS??DAILY DOSE: 10 MILLIGRAM
     Dates: start: 20250514
  7. Oxinorm [Concomitant]
     Indication: Tumour pain
     Dates: start: 20250514
  8. CALONAL [Concomitant]
     Active Substance: ACETAMINOPHEN
     Indication: Tumour pain
     Dosage: 500 MG, 4/DAYS??DAILY DOSE: 2000 MILLIGRAM
     Dates: start: 20250514
  9. LOXOPROFEN SODIUM DIHYDRATE [Concomitant]
     Active Substance: LOXOPROFEN SODIUM DIHYDRATE
     Indication: Tumour pain
     Dosage: 60 MG, 3/DAYS??DAILY DOSE: 180 MILLIGRAM
     Dates: start: 20250514
  10. LANSOPRAZOLE [Concomitant]
     Active Substance: LANSOPRAZOLE
     Indication: Gastritis prophylaxis
     Dosage: DAILY DOSE: 15 MILLIGRAM
     Dates: start: 20250514
  11. SYMPROIC [Concomitant]
     Active Substance: NALDEMEDINE TOSYLATE
     Indication: Constipation prophylaxis
     Dosage: DAILY DOSE: 0.2 MILLIGRAM
     Dates: start: 20250514
  12. Bromfenac Sodium Hydrate [Concomitant]
     Indication: Cataract
     Dosage: 1 DOSAGE FORM, 3/DAYS??DAILY DOSE: 3 DOSAGE FORM
     Dates: start: 202504
  13. LEVOFLOXACIN HEMIHYDRATE [Concomitant]
     Active Substance: LEVOFLOXACIN
     Indication: Cataract
     Dosage: 1 DOSAGE FORM, 3/DAYS??DAILY DOSE: 3 DOSAGE FORM
     Dates: start: 202504
  14. BETAMETHASONE SODIUM PHOSPHATE [Concomitant]
     Active Substance: BETAMETHASONE SODIUM PHOSPHATE
     Indication: Cataract
     Dosage: 1 DOSAGE FORM, 3/DAYS??DAILY DOSE: 3 DOSAGE FORM
     Dates: start: 202504
  15. CYANOCOBALAMIN [Concomitant]
     Active Substance: CYANOCOBALAMIN
     Indication: Chemotherapy side effect prophylaxis
     Dosage: 1 DOSAGE FORM, 3/DAYS??DAILY DOSE: 3 DOSAGE FORM
     Dates: start: 202504
  16. CYANOCOBALAMIN [Concomitant]
     Active Substance: CYANOCOBALAMIN
     Indication: Cataract
     Dosage: 1 DOSAGE FORM, 3/DAYS??DAILY DOSE: 3 DOSAGE FORM
     Dates: start: 202504
  17. CYANOCOBALAMIN [Concomitant]
     Active Substance: CYANOCOBALAMIN
     Indication: Chemotherapy side effect prophylaxis
     Dates: start: 20250606
  18. CYANOCOBALAMIN [Concomitant]
     Active Substance: CYANOCOBALAMIN
     Indication: Cataract
     Dates: start: 20250606
  19. METOCLOPRAMIDE [Concomitant]
     Active Substance: METOCLOPRAMIDE
     Indication: Prophylaxis of nausea and vomiting
     Dosage: 5 MG, 3/DAYS??DAILY DOSE: 15 MILLIGRAM
     Dates: start: 20250603
  20. VITAMINS [Concomitant]
     Active Substance: VITAMINS
     Indication: Chemotherapy side effect prophylaxis
     Dosage: DAILY DOSE: 1 GRAM
     Dates: start: 20250606

REACTIONS (2)
  - Decreased appetite [Not Recovered/Not Resolved]
  - Off label use [Unknown]

NARRATIVE: CASE EVENT DATE: 20250603
